FAERS Safety Report 5373331-9 (Version None)
Quarter: 2007Q2

REPORT INFORMATION
  Report Type: 
  Country: None (occurrence: None)
  Receive Date: 20070626
  Receipt Date: 20070626
  Transmission Date: 20071010
  Serious: Yes (Life-Threatening, Hospitalization, Disabling)
  Sender: FDA-Public Use
  Company Number: None

PATIENT
  Age: 66 Year
  Sex: Male
  Weight: 83.9 kg

DRUGS (5)
  1. LISINOPRIL [Suspect]
     Indication: HYPERTENSION
     Dates: start: 20070619, end: 20070619
  2. AMARYL [Concomitant]
  3. LEXAPRO [Concomitant]
  4. METFORMIN HCL [Concomitant]
  5. NEXIUM [Concomitant]

REACTIONS (3)
  - FALL [None]
  - HEAD INJURY [None]
  - SWOLLEN TONGUE [None]
